FAERS Safety Report 12001397 (Version 1)
Quarter: 2016Q1

REPORT INFORMATION
  Report Type: Spontaneous
  Country: US (occurrence: US)
  Receive Date: 20160204
  Receipt Date: 20160204
  Transmission Date: 20160526
  Serious: Yes (Other)
  Sender: FDA-Public Use
  Company Number: US-PFIZER INC-2016054789

PATIENT
  Age: 55 Year
  Sex: Female

DRUGS (11)
  1. CREON [Concomitant]
     Active Substance: PANCRELIPASE AMYLASE\PANCRELIPASE LIPASE\PANCRELIPASE PROTEASE
     Dosage: 48000 DF, 3X/DAY
  2. CHLORZOXAZONE. [Concomitant]
     Active Substance: CHLORZOXAZONE
     Dosage: 500 MG, 2X/DAY
  3. ACIDOPHILUS [Concomitant]
     Active Substance: LACTOBACILLUS ACIDOPHILUS
     Indication: LACTOSE INTOLERANCE
  4. LANTUS [Concomitant]
     Active Substance: INSULIN GLARGINE
     Indication: BLOOD INSULIN
     Dosage: 36 DF, 1X/DAY
  5. FENOFIBRIC ACID. [Concomitant]
     Active Substance: FENOFIBRIC ACID
     Dosage: 135 MG, 1X/DAY
  6. DEPO-MEDROL [Suspect]
     Active Substance: METHYLPREDNISOLONE ACETATE
     Indication: OSTEOARTHRITIS
  7. OXYCODONE [Concomitant]
     Active Substance: OXYCODONE
     Dosage: 5 MG, UNK
  8. TYLENOL [Concomitant]
     Active Substance: ACETAMINOPHEN
     Indication: PAIN
     Dosage: 1000 MG, EVERY 6 HOURS
  9. CLONIDINE. [Concomitant]
     Active Substance: CLONIDINE
     Indication: HYPERTENSION
     Dosage: 0.4 MG, DAILY
  10. DEPO-MEDROL [Suspect]
     Active Substance: METHYLPREDNISOLONE ACETATE
     Indication: LIGAMENT INJURY
     Dosage: 1CC-40MG IN 3 CC SALINE
     Dates: start: 20160119
  11. ARIXTRA [Concomitant]
     Active Substance: FONDAPARINUX SODIUM

REACTIONS (13)
  - Infection [Unknown]
  - Drug ineffective for unapproved indication [Unknown]
  - Poor quality sleep [Unknown]
  - Abdominal rigidity [Unknown]
  - Gastrointestinal pain [Unknown]
  - Abnormal dreams [Unknown]
  - Anxiety [Unknown]
  - Injection site thrombosis [Unknown]
  - Pyrexia [Unknown]
  - Injection site swelling [Unknown]
  - Blood glucose increased [Unknown]
  - Agitation [Unknown]
  - Headache [Unknown]
